FAERS Safety Report 22585939 (Version 2)
Quarter: 2023Q2

REPORT INFORMATION
  Report Type: Report from Study
  Country: US (occurrence: US)
  Receive Date: 20230610
  Receipt Date: 20230612
  Transmission Date: 20230722
  Serious: Yes (Other)
  Sender: FDA-Public Use
  Company Number: US-MIRATI-MT2023PM04016

PATIENT

DRUGS (1)
  1. KRAZATI [Suspect]
     Active Substance: ADAGRASIB
     Indication: Lung neoplasm malignant
     Dosage: 600 MG, BID
     Route: 048
     Dates: start: 20230514, end: 20230527

REACTIONS (7)
  - Drug interaction [Recovering/Resolving]
  - International normalised ratio increased [Recovering/Resolving]
  - Tremor [Not Recovered/Not Resolved]
  - Asthenia [Recovering/Resolving]
  - Dyspnoea [Recovering/Resolving]
  - Nausea [Recovering/Resolving]
  - Myalgia [Recovering/Resolving]

NARRATIVE: CASE EVENT DATE: 20230515
